FAERS Safety Report 6578668-3 (Version None)
Quarter: 2010Q1

REPORT INFORMATION
  Report Type: 
  Country: None (occurrence: None)
  Receive Date: 20100202
  Receipt Date: 20100125
  Transmission Date: 20100710
  Serious: Yes (Other)
  Sender: FDA-Public Use
  Company Number: 2010US000207

PATIENT
  Age: 72 Year
  Sex: Female

DRUGS (1)
  1. PROTOPIC [Suspect]
     Indication: VITILIGO
     Dosage: TOPICAL
     Route: 061

REACTIONS (1)
  - ANGIOMYOLIPOMA [None]
